FAERS Safety Report 4303875-X (Version None)
Quarter: 2004Q1

REPORT INFORMATION
  Report Type: 
  Country: None (occurrence: None)
  Receive Date: 20040225
  Receipt Date: 20040213
  Transmission Date: 20041129
  Serious: Yes (Hospitalization)
  Sender: FDA-Public Use
  Company Number: FR-GLAXOSMITHKLINE-B0323413A

PATIENT
  Age: 22 Year
  Sex: Female

DRUGS (1)
  1. ZYBAN [Suspect]
     Indication: EX-SMOKER
     Dosage: 150MG SEE DOSAGE TEXT
     Route: 048
     Dates: start: 20040112, end: 20040121

REACTIONS (12)
  - ARTHRALGIA [None]
  - C-REACTIVE PROTEIN INCREASED [None]
  - DRUG EXPOSURE DURING PREGNANCY [None]
  - FACE OEDEMA [None]
  - JOINT SWELLING [None]
  - MOBILITY DECREASED [None]
  - NEUTROPHIL PERCENTAGE INCREASED [None]
  - ODYNOPHAGIA [None]
  - OEDEMA [None]
  - PREGNANCY [None]
  - URTICARIA [None]
  - WHITE BLOOD CELL COUNT INCREASED [None]
